FAERS Safety Report 5706771-6 (Version None)
Quarter: 2008Q2

REPORT INFORMATION
  Report Type: 
  Country: None (occurrence: None)
  Receive Date: 20080415
  Receipt Date: 20080415
  Transmission Date: 20081010
  Serious: Yes (Hospitalization)
  Sender: FDA-Public Use
  Company Number: None

PATIENT
  Sex: Female
  Weight: 76.6 kg

DRUGS (3)
  1. CYTARABINE [Suspect]
     Dosage: 14400 MG
  2. IDARUBICIN HCL [Suspect]
     Dosage: 66 MG
  3. LESTAURTINIB [Suspect]
     Dosage: 1890 MG

REACTIONS (7)
  - BLOOD CULTURE POSITIVE [None]
  - ESCHERICHIA INFECTION [None]
  - HAEMOGLOBIN DECREASED [None]
  - INFECTION [None]
  - PLATELET COUNT DECREASED [None]
  - PYREXIA [None]
  - WHITE BLOOD CELL COUNT DECREASED [None]
